FAERS Safety Report 11291098 (Version 5)
Quarter: 2017Q1

REPORT INFORMATION
  Report Type: Report from Study
  Country: CO (occurrence: CO)
  Receive Date: 20150722
  Receipt Date: 20170224
  Transmission Date: 20170428
  Serious: Yes (Disabling, Other)
  Sender: FDA-Public Use
  Company Number: PHHY2015CO021693

PATIENT
  Age: 55 Year
  Sex: Male
  Weight: 101 kg

DRUGS (2)
  1. ACETAMINOPHEN. [Concomitant]
     Active Substance: ACETAMINOPHEN
     Indication: PRODUCT USED FOR UNKNOWN INDICATION
     Route: 065
  2. TASIGNA [Suspect]
     Active Substance: NILOTINIB
     Indication: CHRONIC MYELOID LEUKAEMIA
     Dosage: 2 DF, Q12H
     Route: 048
     Dates: start: 201406

REACTIONS (16)
  - Myalgia [Not Recovered/Not Resolved]
  - Gait disturbance [Unknown]
  - Hyperphagia [Unknown]
  - Weight increased [Unknown]
  - Dry skin [Unknown]
  - Blister [Unknown]
  - Pain in extremity [Unknown]
  - Depressed mood [Unknown]
  - Anxiety [Unknown]
  - Tendon disorder [Unknown]
  - Mobility decreased [Unknown]
  - Memory impairment [Unknown]
  - Decreased appetite [Unknown]
  - Pain [Unknown]
  - Arthralgia [Not Recovered/Not Resolved]
  - Diarrhoea [Unknown]

NARRATIVE: CASE EVENT DATE: 20150112
